FAERS Safety Report 10607460 (Version 1)
Quarter: 2014Q4

REPORT INFORMATION
  Report Type: Other
  Country: GB (occurrence: GB)
  Receive Date: 20141125
  Receipt Date: 20141125
  Transmission Date: 20150529
  Serious: Yes (Disabling)
  Sender: FDA-Public Use
  Company Number: GB-MYLANLABS-2014M1011021

PATIENT

DRUGS (2)
  1. SIMVASTATIN. [Suspect]
     Active Substance: SIMVASTATIN
     Dosage: UNKNOWN
     Route: 048
  2. SIMVASTATIN. [Suspect]
     Active Substance: SIMVASTATIN
     Indication: BLOOD CHOLESTEROL INCREASED
     Dosage: DOSE CHANGED
     Route: 048

REACTIONS (5)
  - Activities of daily living impaired [Unknown]
  - Quality of life decreased [Unknown]
  - Fatigue [Unknown]
  - Drug ineffective [Unknown]
  - Headache [Unknown]
